FAERS Safety Report 6372170-X (Version None)
Quarter: 2009Q3

REPORT INFORMATION
  Report Type: 
  Country: None (occurrence: None)
  Receive Date: 20090917
  Receipt Date: 20090904
  Transmission Date: 20100115
  Serious: Yes (Other)
  Sender: FDA-Public Use
  Company Number: ADR19322009 (ARROW GENERICS LOG NO. AG3478)

PATIENT
  Age: 19 Year
  Sex: Female

DRUGS (4)
  1. SALBUTAMOL (MFR: UNKNOWN) [Suspect]
     Route: 042
  2. DEXAMETHASONE 4MG TAB [Concomitant]
  3. INSULIN [Concomitant]
  4. DEXTROSE [Concomitant]

REACTIONS (2)
  - DIABETIC KETOACIDOSIS [None]
  - DRUG EXPOSURE DURING PREGNANCY [None]
